FAERS Safety Report 5395989-0 (Version None)
Quarter: 2007Q3

REPORT INFORMATION
  Report Type: 
  Country: None (occurrence: None)
  Receive Date: 20070718
  Receipt Date: 20070508
  Transmission Date: 20080115
  Serious: Yes (Other)
  Sender: FDA-Public Use
  Company Number: 2006124712

PATIENT
  Age: 65 Year
  Sex: Female

DRUGS (2)
  1. CELEBREX [Suspect]
     Dosage: (200 MG), ORAL
     Route: 048
     Dates: end: 20021101
  2. VIOXX [Suspect]
     Dosage: ORAL
     Route: 048
     Dates: start: 19991028, end: 20040825

REACTIONS (1)
  - CEREBROVASCULAR ACCIDENT [None]
